FAERS Safety Report 5810691-6 (Version None)
Quarter: 2008Q3

REPORT INFORMATION
  Report Type: 
  Country: None (occurrence: None)
  Receive Date: 20080715
  Receipt Date: 20080707
  Transmission Date: 20090109
  Serious: Yes (Other)
  Sender: FDA-Public Use
  Company Number: JP-BOEHRINGER INGELHEIM GMBH, GERMANY-2005-BP-21160YA

PATIENT
  Age: 77 Year
  Sex: Male

DRUGS (8)
  1. TAMSULOSIN HCL [Suspect]
     Route: 048
     Dates: start: 20050901
  2. FAMOTIDINE [Suspect]
     Route: 048
     Dates: start: 20020301, end: 20051206
  3. WARFARIN SODIUM [Concomitant]
     Dates: start: 20020101
  4. LANIRAPID [Concomitant]
     Dates: start: 20040101
  5. MARZULENE-S [Concomitant]
  6. DIART [Concomitant]
  7. EVIPROSTAT [Concomitant]
  8. VITAMEDIN [Concomitant]

REACTIONS (1)
  - MYELODYSPLASTIC SYNDROME [None]
